FAERS Safety Report 10562257 (Version 1)
Quarter: 2014Q4

REPORT INFORMATION
  Report Type: Spontaneous
  Country: AU (occurrence: None)
  Receive Date: 20141031
  Receipt Date: 20141031
  Transmission Date: 20150529
  Serious: Yes (Life-Threatening, Hospitalization)
  Sender: FDA-Public Use
  Company Number: IMP_07987_2014

PATIENT
  Age: 26 Year
  Sex: Female

DRUGS (1)
  1. DIVALPROEX SODIUM. [Suspect]
     Active Substance: DIVALPROEX SODIUM
     Indication: PRODUCT USED FOR UNKNOWN INDICATION
     Dosage: NOT THE PRESCRIBED DOSE

REACTIONS (7)
  - Coma scale abnormal [None]
  - Continuous haemodiafiltration [None]
  - Coma [None]
  - Brain oedema [None]
  - Ammonia increased [None]
  - Generalised tonic-clonic seizure [None]
  - Overdose [None]
